FAERS Safety Report 7956983-6 (Version None)
Quarter: 2011Q4

REPORT INFORMATION
  Report Type: 
  Country: None (occurrence: None)
  Receive Date: 20111205
  Receipt Date: 20111205
  Transmission Date: 20120403
  Serious: Yes (Life-Threatening)
  Sender: FDA-Public Use
  Company Number: None

PATIENT
  Age: 29 Year
  Sex: Male
  Weight: 63.5 kg

DRUGS (2)
  1. ZYVOX [Suspect]
     Indication: PYREXIA
     Dosage: 600MG
     Route: 042
     Dates: start: 20111128, end: 20111130
  2. SERTRALINE [Concomitant]
     Dosage: 100MG
     Route: 048
     Dates: start: 20111128, end: 20111130

REACTIONS (4)
  - PYREXIA [None]
  - TACHYCARDIA [None]
  - MENTAL STATUS CHANGES [None]
  - MYDRIASIS [None]
